FAERS Safety Report 6737626-6 (Version None)
Quarter: 2010Q2

REPORT INFORMATION
  Report Type: 
  Country: None (occurrence: None)
  Receive Date: 20100521
  Receipt Date: 20100521
  Transmission Date: 20101027
  Serious: Yes (Other)
  Sender: FDA-Public Use
  Company Number: None

PATIENT
  Age: 46 Year
  Sex: Female
  Weight: 59.8748 kg

DRUGS (1)
  1. KAPIDEX DELAYED RELEASE CAPSULES 60MG ORALLY TAKEDA PHARMACEUTICALS [Suspect]
     Indication: GASTRITIS
     Dates: start: 20100316, end: 20100501

REACTIONS (3)
  - BLISTER [None]
  - RASH PRURITIC [None]
  - SKIN EXFOLIATION [None]
